FAERS Safety Report 4375888-3 (Version None)
Quarter: 2004Q2

REPORT INFORMATION
  Report Type: 
  Country: None (occurrence: None)
  Receive Date: 20040607
  Receipt Date: 20040526
  Transmission Date: 20050107
  Serious: Yes (Hospitalization)
  Sender: FDA-Public Use
  Company Number: GB-JNJFOC-20040506245

PATIENT
  Age: 63 Year
  Sex: Male

DRUGS (8)
  1. REMICADE [Suspect]
     Indication: RHEUMATOID ARTHRITIS
     Dosage: INTRAVENOUS
     Route: 042
     Dates: start: 20031112
  2. METHOTREXATE [Concomitant]
  3. PREDNISOLONE [Concomitant]
  4. RAMIPRIL [Concomitant]
  5. FOLIC ACID [Concomitant]
  6. GLICLAZIDE [Concomitant]
  7. METFORMIN HCL [Concomitant]
  8. ACTONEL [Concomitant]

REACTIONS (2)
  - ATRIAL FIBRILLATION [None]
  - LOWER RESPIRATORY TRACT INFECTION [None]
